FAERS Safety Report 16227713 (Version 3)
Quarter: 2019Q2

REPORT INFORMATION
  Report Type: Spontaneous
  Country: US (occurrence: US)
  Receive Date: 20190423
  Receipt Date: 20190621
  Transmission Date: 20190711
  Serious: Yes (Other)
  Sender: FDA-Public Use
  Company Number: US-PFIZER INC-2019168858

PATIENT
  Age: 73 Year
  Sex: Female

DRUGS (5)
  1. GABAPENTIN. [Suspect]
     Active Substance: GABAPENTIN
     Indication: SPINAL PAIN
  2. GABAPENTIN. [Suspect]
     Active Substance: GABAPENTIN
     Indication: PAIN
     Dosage: 400 MG, DAILY [100 MG IN A.M., 300 MG IN P.M.]
     Dates: start: 201901
  3. GABAPENTIN. [Suspect]
     Active Substance: GABAPENTIN
     Indication: BACK PAIN
  4. GABAPENTIN. [Suspect]
     Active Substance: GABAPENTIN
     Indication: SPINAL OPERATION
     Dosage: 100 MG IN MORNING AND 300 MG AT NIGHT
     Dates: start: 201902
  5. GABAPENTIN. [Suspect]
     Active Substance: GABAPENTIN
     Indication: NECK PAIN

REACTIONS (5)
  - Off label use [Not Recovered/Not Resolved]
  - Cervical spinal stenosis [Not Recovered/Not Resolved]
  - Product use in unapproved indication [Not Recovered/Not Resolved]
  - Condition aggravated [Not Recovered/Not Resolved]
  - Pain [Not Recovered/Not Resolved]

NARRATIVE: CASE EVENT DATE: 201902
